FAERS Safety Report 8325950-5 (Version None)
Quarter: 2012Q2

REPORT INFORMATION
  Report Type: 
  Country: None (occurrence: None)
  Receive Date: 20120501
  Receipt Date: 20120424
  Transmission Date: 20120825
  Serious: No
  Sender: FDA-Public Use
  Company Number: US-BIOGENIDEC-2012BI014243

PATIENT
  Age: 59 Year
  Sex: Female

DRUGS (2)
  1. TYSABRI [Suspect]
     Route: 042
     Dates: start: 20111130
  2. TYSABRI [Suspect]
     Indication: MULTIPLE SCLEROSIS
     Route: 042
     Dates: start: 20100408, end: 20101228

REACTIONS (5)
  - HEADACHE [None]
  - MUSCULAR WEAKNESS [None]
  - PYREXIA [None]
  - BODY TEMPERATURE FLUCTUATION [None]
  - OROPHARYNGEAL PAIN [None]
